FAERS Safety Report 18085650 (Version 1)
Quarter: 2020Q3

REPORT INFORMATION
  Report Type: Spontaneous
  Country: US (occurrence: US)
  Receive Date: 20200728
  Receipt Date: 20200728
  Transmission Date: 20201103
  Serious: Yes (Other)
  Sender: FDA-Public Use
  Company Number: None

PATIENT
  Age: 52 Year
  Sex: Female
  Weight: 74.84 kg

DRUGS (1)
  1. PREGABALIN 50MG [Suspect]
     Active Substance: PREGABALIN
     Indication: NERVOUS SYSTEM DISORDER
     Dosage: ?          OTHER DOSE:60;?
     Route: 048
     Dates: start: 20200605, end: 20200701

REACTIONS (1)
  - Balance disorder [None]

NARRATIVE: CASE EVENT DATE: 20200605
